FAERS Safety Report 7043984-8 (Version None)
Quarter: 2010Q4

REPORT INFORMATION
  Report Type: 
  Country: None (occurrence: None)
  Receive Date: 20101013
  Receipt Date: 20100210
  Transmission Date: 20110411
  Serious: No
  Sender: FDA-Public Use
  Company Number: US-AMGEN-KDL386703

PATIENT
  Sex: Male
  Weight: 63.6 kg

DRUGS (2)
  1. VECTIBIX [Suspect]
     Indication: COLORECTAL CANCER
     Route: 042
     Dates: start: 20090827, end: 20091218
  2. PERCOCET [Concomitant]

REACTIONS (1)
  - NEUTROPENIA [None]
